FAERS Safety Report 7248327-2 (Version None)
Quarter: 2011Q1

REPORT INFORMATION
  Report Type: 
  Country: None (occurrence: None)
  Receive Date: 20110127
  Receipt Date: 20110118
  Transmission Date: 20110831
  Serious: Yes (Hospitalization)
  Sender: FDA-Public Use
  Company Number: US-ASTRAZENECA-2010SE55655

PATIENT
  Age: 31264 Day
  Sex: Male

DRUGS (19)
  1. APIXABAN [Suspect]
     Indication: THROMBOSIS PROPHYLAXIS
     Route: 048
     Dates: start: 20100528, end: 20100605
  2. SOTALOL [Concomitant]
  3. CLOPIDOGREL BISULFATE [Concomitant]
  4. GALANTAMINE HYDROBROMIDE [Concomitant]
  5. VESICARE [Concomitant]
     Dates: start: 20100607
  6. PLACEBO [Suspect]
     Route: 048
     Dates: start: 20100607
  7. APIXABAN [Suspect]
     Route: 048
     Dates: start: 20100607
  8. RANEXA [Concomitant]
     Dates: start: 20100830
  9. RAZADYNE [Suspect]
     Route: 065
     Dates: start: 20100704, end: 20101202
  10. ACYCLOVIR [Concomitant]
     Dates: start: 20100704
  11. LIPITOR [Concomitant]
  12. RAMIPRIL [Concomitant]
  13. PROTONIX [Concomitant]
     Dates: start: 20100704
  14. MEGACE [Concomitant]
     Dates: start: 20100718
  15. PLACEBO [Suspect]
     Indication: THROMBOSIS PROPHYLAXIS
     Route: 048
     Dates: start: 20100528, end: 20100605
  16. PANTOPRAZOLE [Concomitant]
     Dates: start: 20100607
  17. SYMBICORT [Suspect]
     Route: 055
     Dates: start: 20100607
  18. ASPIRIN [Concomitant]
  19. ALTACE [Concomitant]
     Dates: start: 20100704

REACTIONS (5)
  - CHRONIC OBSTRUCTIVE PULMONARY DISEASE [None]
  - CARDIAC FAILURE CONGESTIVE [None]
  - HICCUPS [None]
  - OROPHARYNGEAL PAIN [None]
  - TREMOR [None]
